FAERS Safety Report 25451242 (Version 1)
Quarter: 2025Q2

REPORT INFORMATION
  Report Type: Spontaneous
  Country: US (occurrence: US)
  Receive Date: 20250618
  Receipt Date: 20250618
  Transmission Date: 20250717
  Serious: No
  Sender: ITALFARMACO SPA
  Company Number: US-ITALFARMACO SPA-2178941

PATIENT
  Age: 11 Year
  Sex: Male
  Weight: 30.02 kg

DRUGS (8)
  1. DUVYZAT [Suspect]
     Active Substance: GIVINOSTAT
     Indication: Duchenne muscular dystrophy
     Dates: start: 20250416
  2. EMFLAZA [Concomitant]
     Active Substance: DEFLAZACORT
  3. ZYRTEC [Concomitant]
     Active Substance: CETIRIZINE HYDROCHLORIDE
  4. RISPERIDONE [Concomitant]
     Active Substance: RISPERIDONE
  5. QUILLIVANT XR [Concomitant]
     Active Substance: METHYLPHENIDATE HYDROCHLORIDE
  6. GUANFACINE [Concomitant]
     Active Substance: GUANFACINE
  7. FLUOXETINE [Concomitant]
     Active Substance: FLUOXETINE HYDROCHLORIDE
  8. ENALAPRIL MALEATE [Concomitant]
     Active Substance: ENALAPRIL MALEATE

REACTIONS (1)
  - Somnolence [Unknown]
